FAERS Safety Report 15860760 (Version 1)
Quarter: 2019Q1

REPORT INFORMATION
  Report Type: Spontaneous
  Country: US (occurrence: US)
  Receive Date: 20190124
  Receipt Date: 20190124
  Transmission Date: 20190417
  Serious: No
  Sender: FDA-Public Use
  Company Number: US-TORRENT-00006316

PATIENT
  Age: 52 Year
  Sex: Male
  Weight: 73 kg

DRUGS (4)
  1. DULOXETIN HYDROCHLORIDE CAPSULE, DELAYED RELEASE [Suspect]
     Active Substance: DULOXETINE HYDROCHLORIDE
     Indication: BACK PAIN
     Dosage: 30 MG 1 CAPSULE A DAY
     Route: 048
     Dates: start: 20180607, end: 20180614
  2. HYDROCODONE/ACETAMINOPHEN [Concomitant]
     Active Substance: ACETAMINOPHEN\HYDROCODONE
     Indication: INTERVERTEBRAL DISC PROTRUSION
     Dosage: 10/325MG
  3. BACLOFEN. [Concomitant]
     Active Substance: BACLOFEN
     Indication: INTERVERTEBRAL DISC PROTRUSION
     Dosage: UNKNOWN
  4. NAPROXEN. [Concomitant]
     Active Substance: NAPROXEN
     Indication: INTERVERTEBRAL DISC PROTRUSION
     Dosage: UNKNOWN

REACTIONS (11)
  - Dizziness [Recovered/Resolved]
  - Pyrexia [Recovered/Resolved]
  - Anxiety [Recovered/Resolved]
  - Ocular hyperaemia [Not Recovered/Not Resolved]
  - Nausea [Recovered/Resolved]
  - Decreased appetite [Recovered/Resolved]
  - Insomnia [Recovered/Resolved]
  - Vision blurred [Not Recovered/Not Resolved]
  - Dysgeusia [Recovered/Resolved]
  - Eye swelling [Not Recovered/Not Resolved]
  - Tremor [Recovered/Resolved]
